FAERS Safety Report 18830871 (Version 1)
Quarter: 2021Q1

REPORT INFORMATION
  Report Type: Spontaneous
  Country: US (occurrence: US)
  Receive Date: 20210203
  Receipt Date: 20210203
  Transmission Date: 20210419
  Serious: Yes (Other)
  Sender: FDA-Public Use
  Company Number: US-GLAXOSMITHKLINE-US2021GSK027032

PATIENT
  Sex: Female

DRUGS (4)
  1. RANITIDINE HYDROCHLORIDE. [Suspect]
     Active Substance: RANITIDINE HYDROCHLORIDE
     Indication: GASTRIC ULCER
     Dosage: 75 MG, QD
     Route: 065
     Dates: start: 199002, end: 200401
  2. RANITIDINE HYDROCHLORIDE. [Suspect]
     Active Substance: RANITIDINE HYDROCHLORIDE
     Indication: GASTRIC ULCER
     Dosage: 75 MG, QD
     Route: 065
     Dates: start: 199002, end: 200401
  3. RANITIDINE CAPSULE [Suspect]
     Active Substance: RANITIDINE
     Indication: GASTRIC ULCER
     Dosage: 25 MG, QD
     Route: 065
     Dates: start: 200401, end: 201006
  4. ZANTAC [Suspect]
     Active Substance: RANITIDINE HYDROCHLORIDE
     Indication: GASTRIC ULCER
     Dosage: 25 MG, QD
     Route: 065
     Dates: start: 200401, end: 201006

REACTIONS (2)
  - Breast cancer [Unknown]
  - Skin cancer [Unknown]
